FAERS Safety Report 21070235 (Version 2)
Quarter: 2022Q3

REPORT INFORMATION
  Report Type: Spontaneous
  Country: RU (occurrence: RU)
  Receive Date: 20220712
  Receipt Date: 20220726
  Transmission Date: 20221027
  Serious: Yes (Other)
  Sender: FDA-Public Use
  Company Number: RU-FreseniusKabi-FK202209688

PATIENT
  Sex: Female

DRUGS (2)
  1. GEMCITABINE [Suspect]
     Active Substance: GEMCITABINE
     Indication: Chemotherapy
     Dosage: 21-DAY CYCLES WERE COMPLETED
     Dates: start: 202010, end: 202102
  2. CISPLATIN [Suspect]
     Active Substance: CISPLATIN
     Indication: Chemotherapy
     Dates: start: 202010, end: 202102

REACTIONS (5)
  - Haematotoxicity [Unknown]
  - Ascites [Unknown]
  - Peritonitis [Unknown]
  - Nausea [Unknown]
  - Disease progression [Unknown]
